FAERS Safety Report 26215495 (Version 1)
Quarter: 2025Q4

REPORT INFORMATION
  Report Type: Report from Study
  Country: US (occurrence: US)
  Receive Date: 20251231
  Receipt Date: 20251231
  Transmission Date: 20260118
  Serious: Yes (Other)
  Sender: ALEXION PHARMACEUTICALS
  Company Number: US-ASTRAZENECA-202512NAM016814US

PATIENT
  Age: 71 Year
  Sex: Female

DRUGS (2)
  1. STRENSIQ [Suspect]
     Active Substance: ASFOTASE ALFA
     Indication: Phosphorus metabolism disorder
     Dosage: 1 MILLIGRAM/KILOGRAM, SIX TIMES/WEEK
     Route: 065
  2. STRENSIQ [Suspect]
     Active Substance: ASFOTASE ALFA
     Dosage: 75 MILLIGRAM (PRESCRIBED 62 MILLIGRAM)
     Route: 065

REACTIONS (10)
  - Nausea [Recovering/Resolving]
  - Dizziness [Recovering/Resolving]
  - Visual impairment [Unknown]
  - Vomiting [Unknown]
  - Feeling of body temperature change [Unknown]
  - Accidental overdose [Unknown]
  - Hallucination [Unknown]
  - Headache [Unknown]
  - Chest pain [Unknown]
  - Ear discomfort [Unknown]

NARRATIVE: CASE EVENT DATE: 20251217
